FAERS Safety Report 22021202 (Version 1)
Quarter: 2023Q1

REPORT INFORMATION
  Report Type: Spontaneous
  Country: US (occurrence: None)
  Receive Date: 20230217
  Receipt Date: 20230217
  Transmission Date: 20230417
  Serious: No
  Sender: FDA-Public Use
  Company Number: None

PATIENT
  Sex: Female

DRUGS (1)
  1. TREMFYA [Suspect]
     Active Substance: GUSELKUMAB
     Indication: Psoriatic arthropathy
     Dosage: OTHER FREQUENCY : EVERY8WKSSC;?
     Dates: start: 20221125

REACTIONS (4)
  - Lipase increased [None]
  - White blood cell count increased [None]
  - Abdominal pain upper [None]
  - Diarrhoea [None]
